FAERS Safety Report 7200814-9 (Version None)
Quarter: 2010Q4

REPORT INFORMATION
  Report Type: 
  Country: None (occurrence: None)
  Receive Date: 20101228
  Receipt Date: 20101224
  Transmission Date: 20110411
  Serious: Yes (Other)
  Sender: FDA-Public Use
  Company Number: AU-PFIZER INC-2010178736

PATIENT
  Sex: Female

DRUGS (2)
  1. NORVASC [Suspect]
     Indication: VERTIGO
     Dosage: 10 MG, 1X/DAY
  2. ACETYLSALICYLIC ACID [Suspect]
     Dosage: 100 MG, 1X/DAY

REACTIONS (4)
  - COORDINATION ABNORMAL [None]
  - DIZZINESS [None]
  - DRUG INTERACTION [None]
  - SLUGGISHNESS [None]
